FAERS Safety Report 4695643-4 (Version None)
Quarter: 2005Q2

REPORT INFORMATION
  Report Type: 
  Country: None (occurrence: None)
  Receive Date: 20050608
  Receipt Date: 20050420
  Transmission Date: 20051028
  Serious: Yes (Hospitalization)
  Sender: FDA-Public Use
  Company Number: A03200501161

PATIENT

DRUGS (1)
  1. ELOXATIN [Suspect]
     Dosage: INTRAVENOUS NOS
     Route: 042

REACTIONS (2)
  - DEHYDRATION [None]
  - STOMATITIS [None]
